FAERS Safety Report 5857306-9 (Version None)
Quarter: 2008Q3

REPORT INFORMATION
  Report Type: 
  Country: None (occurrence: None)
  Receive Date: 20080822
  Receipt Date: 20080811
  Transmission Date: 20090109
  Serious: Yes (Hospitalization)
  Sender: FDA-Public Use
  Company Number: 2008S1014334

PATIENT
  Age: 76 Year
  Sex: Male
  Weight: 180 kg

DRUGS (6)
  1. METHOTREXATE [Suspect]
     Indication: RHEUMATOID ARTHRITIS
     Dosage: 2.5 MG; 3 TIMES A DAY; ORAL
     Route: 048
     Dates: start: 20080721, end: 20080726
  2. METOPROLOL TARTRATE [Concomitant]
  3. METFORMIN HCL [Concomitant]
  4. CORTICOSTEROID NOS [Concomitant]
  5. DIOVAN/01319601 [Concomitant]
  6. COUMADIN/0001480/ [Concomitant]

REACTIONS (11)
  - ABSCESS INTESTINAL [None]
  - ACCIDENTAL OVERDOSE [None]
  - ANORECTAL DISORDER [None]
  - BLISTER [None]
  - BLOOD COUNT ABNORMAL [None]
  - GENERALISED ERYTHEMA [None]
  - HEADACHE [None]
  - INCORRECT DOSE ADMINISTERED [None]
  - PHOTOPHOBIA [None]
  - PRURITUS GENERALISED [None]
  - STOMATITIS [None]
